FAERS Safety Report 9584787 (Version 2)
Quarter: 2013Q4

REPORT INFORMATION
  Report Type: Spontaneous
  Country: US (occurrence: US)
  Receive Date: 20131002
  Receipt Date: 20131002
  Transmission Date: 20140711
  Serious: No
  Sender: FDA-Public Use
  Company Number: US-AMGEN-USASP2013045131

PATIENT
  Age: 48 Year
  Sex: Male
  Weight: 95.24 kg

DRUGS (2)
  1. ENBREL [Suspect]
     Indication: RHEUMATOID ARTHRITIS
     Dosage: 50 MG, QWK
     Route: 058
     Dates: start: 20130610, end: 201307
  2. ENBREL [Suspect]
     Dosage: UNK
     Route: 058

REACTIONS (5)
  - Headache [Unknown]
  - Fatigue [Unknown]
  - Temperature intolerance [Unknown]
  - Flushing [Unknown]
  - Asthenia [Unknown]
